FAERS Safety Report 5531162-0 (Version None)
Quarter: 2007Q4

REPORT INFORMATION
  Report Type: 
  Country: None (occurrence: None)
  Receive Date: 20071130
  Receipt Date: 20071120
  Transmission Date: 20080405
  Serious: Yes (Other)
  Sender: FDA-Public Use
  Company Number: JP-PFIZER INC-2007099013

PATIENT
  Age: 76 Year

DRUGS (3)
  1. SULPERAZON [Suspect]
     Route: 042
  2. VOLTAREN [Suspect]
  3. BUSCOPAN [Suspect]

REACTIONS (1)
  - ALCOHOLIC LIVER DISEASE [None]
